FAERS Safety Report 18869599 (Version 1)
Quarter: 2021Q1

REPORT INFORMATION
  Report Type: Spontaneous
  Country: US (occurrence: US)
  Receive Date: 20210210
  Receipt Date: 20210210
  Transmission Date: 20210420
  Serious: No
  Sender: FDA-Public Use
  Company Number: US-SA-2021SA036309

PATIENT
  Age: 59 Year
  Sex: Male

DRUGS (1)
  1. DUPIXENT [Suspect]
     Active Substance: DUPILUMAB
     Dosage: 150 MG
     Route: 058
     Dates: start: 2020

REACTIONS (3)
  - Therapeutic response decreased [Unknown]
  - Vision blurred [Unknown]
  - Visual field defect [Unknown]

NARRATIVE: CASE EVENT DATE: 20210116
